FAERS Safety Report 6145594-3 (Version None)
Quarter: 2009Q2

REPORT INFORMATION
  Report Type: 
  Country: None (occurrence: None)
  Receive Date: 20090407
  Receipt Date: 20090326
  Transmission Date: 20091009
  Serious: Yes (Hospitalization)
  Sender: FDA-Public Use
  Company Number: PHHY2009FR11429

PATIENT
  Sex: Male

DRUGS (2)
  1. GLEEVEC [Suspect]
     Indication: GASTROINTESTINAL STROMAL TUMOUR
  2. GLEEVEC [Suspect]
     Indication: METASTASES TO LIVER

REACTIONS (2)
  - ACUTE ABDOMEN [None]
  - MESENTERIC VEIN THROMBOSIS [None]
